FAERS Safety Report 5360563-9 (Version None)
Quarter: 2007Q2

REPORT INFORMATION
  Report Type: 
  Country: None (occurrence: None)
  Receive Date: 20070618
  Receipt Date: 20070615
  Transmission Date: 20071010
  Serious: Yes (Other)
  Sender: FDA-Public Use
  Company Number: HQWYE499506JUN07

PATIENT
  Sex: Female

DRUGS (2)
  1. 0.03MG LEVONORGESTREL [Suspect]
     Indication: CONTRACEPTION
     Dosage: UNKNOWN
     Route: 065
  2. BOSENTAN [Interacting]

REACTIONS (3)
  - DRUG INEFFECTIVE [None]
  - DRUG INTERACTION [None]
  - UNINTENDED PREGNANCY [None]
